FAERS Safety Report 6354576-8 (Version None)
Quarter: 2009Q3

REPORT INFORMATION
  Report Type: 
  Country: None (occurrence: None)
  Receive Date: 20090914
  Receipt Date: 20090901
  Transmission Date: 20100115
  Serious: Yes (Other)
  Sender: FDA-Public Use
  Company Number: US-ELI_LILLY_AND_COMPANY-US200909001153

PATIENT
  Sex: Female

DRUGS (1)
  1. PROZAC [Suspect]
     Dosage: UNK, UNKNOWN
     Route: 065

REACTIONS (1)
  - PERITONEAL DIALYSIS [None]
